FAERS Safety Report 10273321 (Version 1)
Quarter: 2014Q3

REPORT INFORMATION
  Report Type: Spontaneous
  Country: US (occurrence: US)
  Receive Date: 20140702
  Receipt Date: 20140702
  Transmission Date: 20150326
  Serious: No
  Sender: FDA-Public Use
  Company Number: US-009507513-1406USA012940

PATIENT
  Age: 53 Year
  Sex: Male

DRUGS (2)
  1. TEMODAR [Suspect]
     Active Substance: TEMOZOLOMIDE
     Dosage: 180 MG, 1 CAPSULE DAILY FOR 5 DAYS EVERY 28 DAYS
     Dates: start: 20131120
  2. TEMODAR [Suspect]
     Active Substance: TEMOZOLOMIDE
     Indication: BRAIN NEOPLASM
     Dosage: 140 MG, 1 CAPSULE DAILY FOR 5 DAYS EVERY 28 DAYS
     Dates: start: 20131120

REACTIONS (1)
  - Adverse event [Unknown]
